FAERS Safety Report 6359247-X (Version None)
Quarter: 2009Q3

REPORT INFORMATION
  Report Type: 
  Country: None (occurrence: None)
  Receive Date: 20090917
  Receipt Date: 20090911
  Transmission Date: 20100115
  Serious: Yes (Hospitalization)
  Sender: FDA-Public Use
  Company Number: US-BAYER-200932798NA

PATIENT
  Age: 28 Year
  Sex: Female
  Weight: 76 kg

DRUGS (2)
  1. MIRENA [Suspect]
     Indication: CONTRACEPTION
     Dosage: CONTINUOUS
     Route: 015
     Dates: start: 20081001
  2. VITAMIN TAB [Concomitant]

REACTIONS (2)
  - BACK PAIN [None]
  - IUD MIGRATION [None]
